FAERS Safety Report 9994916 (Version 1)
Quarter: 2014Q1

REPORT INFORMATION
  Report Type: Spontaneous
  Country: US (occurrence: None)
  Receive Date: 20140214
  Receipt Date: 20140214
  Transmission Date: 20141002
  Serious: Yes (Other)
  Sender: FDA-Public Use
  Company Number: 1000045703

PATIENT
  Sex: Male

DRUGS (1)
  1. BYSTOLIC (NEBIVOLOL HYDROCHLORIDE) [Suspect]

REACTIONS (1)
  - Angioedema [None]
